FAERS Safety Report 9853328 (Version 1)
Quarter: 2013Q4

REPORT INFORMATION
  Report Type: Spontaneous
  Country: US (occurrence: None)
  Receive Date: 20131226
  Receipt Date: 20131226
  Transmission Date: 20140711
  Serious: Yes (Other)
  Sender: FDA-Public Use
  Company Number: PHHY2013US084027

PATIENT
  Sex: Female

DRUGS (5)
  1. GILENYA (FINGOLIMOD) CAPSULE, 0.5MG [Suspect]
     Route: 048
     Dates: start: 20110812, end: 20120829
  2. PROVIGIL/MODAFINIL (MODAFINIL) [Concomitant]
  3. EFFEXOR (VENLAFAXINE HYDROCHLORIDE) [Concomitant]
  4. LORAZEPAM (LORAZEPAM) [Concomitant]
  5. TRAZODONE (TRAZODONE) [Concomitant]

REACTIONS (1)
  - Genital herpes [None]
